FAERS Safety Report 8260463-0 (Version None)
Quarter: 2012Q2

REPORT INFORMATION
  Report Type: 
  Country: None (occurrence: None)
  Receive Date: 20120404
  Receipt Date: 20120327
  Transmission Date: 20120825
  Serious: Yes (Hospitalization, Disabling)
  Sender: FDA-Public Use
  Company Number: US-MERCK-1203USA03361

PATIENT
  Age: 62 Year
  Sex: Female
  Weight: 46 kg

DRUGS (9)
  1. FOSAMAX [Suspect]
     Indication: OSTEOPOROSIS
     Route: 048
     Dates: start: 20031029, end: 20080301
  2. FOSAMAX [Suspect]
     Route: 048
     Dates: start: 20031001
  3. FOSAMAX [Suspect]
     Indication: OSTEOPENIA
     Route: 048
     Dates: start: 20031029, end: 20080301
  4. VITAMINS (UNSPECIFIED) [Concomitant]
     Route: 065
  5. CALCIUM CARBONATE [Concomitant]
     Route: 065
     Dates: start: 20050701
  6. CLARITIN [Concomitant]
     Indication: HYPERSENSITIVITY
     Route: 048
     Dates: start: 20051001
  7. ALENDRONATE SODIUM [Suspect]
     Indication: OSTEOPOROSIS
     Route: 048
     Dates: start: 20080304, end: 20110510
  8. FOSAMAX [Suspect]
     Route: 048
     Dates: start: 20031001
  9. ASPIRIN [Concomitant]
     Route: 065
     Dates: start: 20050101

REACTIONS (23)
  - FALL [None]
  - WEIGHT DECREASED [None]
  - ACQUIRED OESOPHAGEAL WEB [None]
  - LOW TURNOVER OSTEOPATHY [None]
  - STRESS FRACTURE [None]
  - SMALL INTESTINE ULCER [None]
  - RESPIRATORY TRACT CONGESTION [None]
  - HIATUS HERNIA [None]
  - CERUMEN IMPACTION [None]
  - OTITIS MEDIA [None]
  - HYPERLIPIDAEMIA [None]
  - HYPERCHOLESTEROLAEMIA [None]
  - OSTEOPENIA [None]
  - SKIN LESION [None]
  - PAIN [None]
  - OEDEMA [None]
  - EYE DISORDER [None]
  - ANAEMIA POSTOPERATIVE [None]
  - GASTRITIS [None]
  - FATIGUE [None]
  - FEMUR FRACTURE [None]
  - HELICOBACTER GASTRITIS [None]
  - COUGH [None]
